FAERS Safety Report 19894100 (Version 4)
Quarter: 2022Q2

REPORT INFORMATION
  Report Type: Spontaneous
  Country: CA (occurrence: CA)
  Receive Date: 20210928
  Receipt Date: 20220426
  Transmission Date: 20220721
  Serious: Yes (Other)
  Sender: FDA-Public Use
  Company Number: CA-PFIZER INC-2021530901

PATIENT
  Age: 3 Year
  Sex: Female

DRUGS (2)
  1. GENOTROPIN [Suspect]
     Active Substance: SOMATROPIN
     Indication: Prader-Willi syndrome
     Dosage: 700 UG, 1X/DAY
     Route: 058
     Dates: start: 20210429, end: 20210728
  2. GENOTROPIN [Suspect]
     Active Substance: SOMATROPIN
     Dosage: 700 UG, 1X/DAY
     Route: 058
     Dates: start: 20220301

REACTIONS (8)
  - Apnoea [Not Recovered/Not Resolved]
  - Adenoidal hypertrophy [Not Recovered/Not Resolved]
  - Tonsillar hypertrophy [Not Recovered/Not Resolved]
  - Contusion [Not Recovered/Not Resolved]
  - Injection site pruritus [Unknown]
  - Incorrect route of product administration [Unknown]
  - Injection site haemorrhage [Unknown]
  - Injection site bruising [Unknown]

NARRATIVE: CASE EVENT DATE: 20210101
